FAERS Safety Report 6552178-1 (Version None)
Quarter: 2010Q1

REPORT INFORMATION
  Report Type: 
  Country: None (occurrence: None)
  Receive Date: 20100126
  Receipt Date: 20100119
  Transmission Date: 20100710
  Serious: Yes (Other)
  Sender: FDA-Public Use
  Company Number: US-SANOFI-AVENTIS-2010SA003959

PATIENT
  Age: 76 Year
  Sex: Male

DRUGS (8)
  1. LANTUS [Suspect]
     Indication: TYPE 2 DIABETES MELLITUS
     Dosage: DOSE:18 UNIT(S)
     Route: 058
     Dates: start: 20040101
  2. OPTICLICK [Suspect]
     Indication: TYPE 2 DIABETES MELLITUS
  3. COREG [Concomitant]
  4. ALLOPURINOL [Concomitant]
  5. LOTREL [Concomitant]
  6. PLAVIX [Concomitant]
  7. JANUVIA [Concomitant]
  8. DIGOXIN [Concomitant]

REACTIONS (7)
  - CARDIAC PACEMAKER INSERTION [None]
  - CAROTID ARTERY OCCLUSION [None]
  - DIPLOPIA [None]
  - DISORIENTATION [None]
  - NAUSEA [None]
  - PHOTOPHOBIA [None]
  - VISION BLURRED [None]
